FAERS Safety Report 14598106 (Version 5)
Quarter: 2018Q4

REPORT INFORMATION
  Report Type: Spontaneous
  Country: DE (occurrence: DE)
  Receive Date: 20180305
  Receipt Date: 20181211
  Transmission Date: 20190204
  Serious: Yes (Hospitalization, Other)
  Sender: FDA-Public Use
  Company Number: DE-AMGEN-DEUSP2018029143

PATIENT
  Age: 62 Year
  Sex: Male
  Weight: 70 kg

DRUGS (19)
  1. 5-FLUOROURACIL [Suspect]
     Active Substance: FLUOROURACIL
     Indication: COLORECTAL CANCER
     Dosage: 64 DF, QWK (DOSE RANGE 4344- 5792 MG)
     Route: 040
     Dates: start: 20151228, end: 20160511
  2. 5-FLUOROURACIL [Suspect]
     Active Substance: FLUOROURACIL
     Dosage: 724 MG, 2 TIMES/WK (4344-5792 MG)
     Route: 040
     Dates: start: 20160829, end: 20161107
  3. FOLINIC ACID [Suspect]
     Active Substance: LEUCOVORIN
     Indication: COLORECTAL CANCER
     Dosage: 2 DF, QWK (362-364 MG)
     Route: 042
     Dates: start: 20151228, end: 20161107
  4. PANTOPRAZOL [Concomitant]
     Active Substance: PANTOPRAZOLE SODIUM
     Indication: PRODUCT USED FOR UNKNOWN INDICATION
     Dosage: 40 MG, QD
     Route: 048
     Dates: start: 20160619
  5. PEGFILGRASTIM [Suspect]
     Active Substance: PEGFILGRASTIM
     Indication: NEUTROPENIA
     Dosage: 6 MG, Q2WK
     Route: 042
     Dates: start: 20151228
  6. BEVACIZUMAB. [Suspect]
     Active Substance: BEVACIZUMAB
     Dosage: 350 MG, 2 TIMES/WK
     Route: 042
     Dates: start: 20161024
  7. FOLINIC ACID [Suspect]
     Active Substance: LEUCOVORIN
     Dosage: 1 DF, Q2WK (362-364 MG)
     Route: 042
     Dates: start: 20151228, end: 20161107
  8. BEVACIZUMAB. [Suspect]
     Active Substance: BEVACIZUMAB
     Dosage: 710 MG, QWK
     Route: 042
     Dates: start: 20160404, end: 20161024
  9. DEXAMETHASON [Concomitant]
     Active Substance: DEXAMETHASONE
     Indication: NAUSEA
     Dosage: 8 MG, UNK (BEFORE CHEMOTHERAPY)
     Route: 042
     Dates: start: 20151228
  10. BEVACIZUMAB. [Suspect]
     Active Substance: BEVACIZUMAB
     Indication: COLORECTAL CANCER METASTATIC
     Dosage: 350 MG, 2 TIMES/WK
     Route: 042
     Dates: start: 20151228, end: 20161024
  11. 5-FLUOROURACIL [Suspect]
     Active Substance: FLUOROURACIL
     Dosage: 724 MG, Q2WK (4344-5792 MG)
     Route: 040
     Dates: start: 20160829, end: 20161107
  12. OXALIPLATIN. [Suspect]
     Active Substance: OXALIPLATIN
     Dosage: 244 MG, QWK (123.76 MG, Q2W)
     Route: 042
     Dates: start: 20160815
  13. BISOPROLOL [Concomitant]
     Active Substance: BISOPROLOL
     Indication: HYPERTENSION
     Dosage: 5 MG, QD
     Route: 048
  14. OXALIPLATIN. [Suspect]
     Active Substance: OXALIPLATIN
     Dosage: 244 MG, QWK
     Route: 042
     Dates: start: 20160509, end: 20160815
  15. IRINOTECAN [Suspect]
     Active Substance: IRINOTECAN
     Indication: OFF LABEL USE
     Dosage: 326 MG, Q2WK
     Route: 042
     Dates: start: 20161107
  16. OXALIPLATIN. [Suspect]
     Active Substance: OXALIPLATIN
     Indication: COLORECTAL CANCER METASTATIC
     Dosage: 153.85 MG, Q2WK (123.76 OR 122 MG)
     Route: 042
     Dates: start: 20151228, end: 20160509
  17. IRINOTECAN [Suspect]
     Active Substance: IRINOTECAN
     Indication: COLORECTAL CANCER METASTATIC
     Dosage: 298.65 MG, Q2WK
     Route: 042
     Dates: start: 20151228, end: 20161107
  18. OXALIPLATIN. [Suspect]
     Active Substance: OXALIPLATIN
     Dosage: 123.76 MG, Q2WK
     Route: 042
     Dates: start: 20160509, end: 20160815
  19. ONDANSETRON [Concomitant]
     Active Substance: ONDANSETRON
     Indication: NAUSEA
     Dosage: 6 MG, QD
     Route: 042
     Dates: start: 20151228

REACTIONS (2)
  - Liver abscess [Recovered/Resolved]
  - Perihepatic abscess [Recovered/Resolved]

NARRATIVE: CASE EVENT DATE: 20160622
